FAERS Safety Report 9614721 (Version 1)
Quarter: 2013Q4

REPORT INFORMATION
  Report Type: Report from Study
  Country: FR (occurrence: FR)
  Receive Date: 20131011
  Receipt Date: 20131011
  Transmission Date: 20140711
  Serious: Yes (Hospitalization, Other)
  Sender: FDA-Public Use
  Company Number: FR-ASTELLAS-2013EU008654

PATIENT
  Age: 73 Year
  Sex: Male
  Weight: 66.5 kg

DRUGS (4)
  1. ENZALUTAMIDE [Suspect]
     Indication: PROSTATE CANCER
     Dosage: 160 MG/DAY, UID/QD
     Route: 048
     Dates: start: 20130704
  2. LASILIX                            /00032601/ [Concomitant]
     Indication: OEDEMA
     Dosage: 10 MG, UNKNOWN/D
     Route: 065
     Dates: start: 20130704
  3. XARELTO [Concomitant]
     Indication: PULMONARY EMBOLISM
     Dosage: UNK
     Route: 065
     Dates: start: 20130628
  4. FLECAINE [Concomitant]
     Indication: ARRHYTHMIA
     Dosage: 100 MG, UNKNOWN/D
     Route: 065
     Dates: start: 20130703

REACTIONS (6)
  - General physical health deterioration [Recovering/Resolving]
  - Asthenia [Not Recovered/Not Resolved]
  - Mucosal inflammation [Recovered/Resolved]
  - Anaemia [Recovering/Resolving]
  - Confusional state [Unknown]
  - Unresponsive to stimuli [Unknown]
